FAERS Safety Report 26066028 (Version 1)
Quarter: 2025Q4

REPORT INFORMATION
  Report Type: Spontaneous
  Country: US (occurrence: None)
  Receive Date: 20251119
  Receipt Date: 20251119
  Transmission Date: 20260118
  Serious: Yes (Hospitalization)
  Sender: FDA-CTU
  Company Number: None

PATIENT
  Age: 70 Year
  Sex: Male
  Weight: 79.65 kg

DRUGS (12)
  1. JARDIANCE [Suspect]
     Active Substance: EMPAGLIFLOZIN
     Indication: Type 2 diabetes mellitus
     Dates: start: 20180507, end: 20251026
  2. lipitor 80mg daily [Concomitant]
     Dates: start: 20241009
  3. wellbutrin XL 150mg daily [Concomitant]
     Dates: start: 20250717
  4. vitamin D 5000 IU daily [Concomitant]
     Dates: start: 20190715
  5. plavix 75mg daily [Concomitant]
     Dates: start: 20250319
  6. vitamin b12 1000mcg daily [Concomitant]
  7. lexapro 5mg daily [Concomitant]
  8. lisinopril 2.5mg daily [Concomitant]
     Dates: start: 20250102
  9. metofmrin XR 500mg 2 tabs twice deaily [Concomitant]
  10. mounjaro 5mg weekly [Concomitant]
     Dates: start: 20250718
  11. topomax 50mg daily [Concomitant]
  12. trazodone 100mg daily as needed [Concomitant]

REACTIONS (2)
  - Euglycaemic diabetic ketoacidosis [None]
  - Diarrhoea [None]

NARRATIVE: CASE EVENT DATE: 20251026
